FAERS Safety Report 5786377-3 (Version None)
Quarter: 2008Q2

REPORT INFORMATION
  Report Type: 
  Country: None (occurrence: None)
  Receive Date: 20080624
  Receipt Date: 20070703
  Transmission Date: 20081010
  Serious: No
  Sender: FDA-Public Use
  Company Number: US-ASTRAZENECA-2007UW15656

PATIENT
  Age: 74 Year
  Sex: Male
  Weight: 73.5 kg

DRUGS (2)
  1. PULMICORT-100 [Suspect]
     Indication: BREATH SOUNDS ABNORMAL
     Route: 055
  2. VITAMINS [Concomitant]

REACTIONS (3)
  - ASTHENIA [None]
  - FATIGUE [None]
  - INSOMNIA [None]
